FAERS Safety Report 9283304 (Version 1)
Quarter: 2013Q2

REPORT INFORMATION
  Report Type: Spontaneous
  Country: US (occurrence: US)
  Receive Date: 20130510
  Receipt Date: 20130510
  Transmission Date: 20140414
  Serious: Yes (Other)
  Sender: FDA-Public Use
  Company Number: US-GLAXOSMITHKLINE-A0995827A

PATIENT
  Age: 45 Year
  Sex: Female
  Weight: 88.9 kg

DRUGS (9)
  1. TYKERB [Suspect]
     Indication: BREAST CANCER
     Dosage: 1250MG PER DAY
     Route: 048
     Dates: start: 20120905
  2. HOMATROPINE [Concomitant]
  3. HUMULIN N [Concomitant]
  4. LORAZEPAM [Concomitant]
  5. LORTAB [Concomitant]
  6. MULTIVITAMIN [Concomitant]
  7. LEVOTHYROXINE [Concomitant]
  8. OXYCODONE [Concomitant]
  9. LETROZOLE [Concomitant]

REACTIONS (2)
  - Rash [Recovering/Resolving]
  - Vomiting [Recovering/Resolving]
